FAERS Safety Report 5123151-5 (Version None)
Quarter: 2006Q4

REPORT INFORMATION
  Report Type: 
  Country: None (occurrence: None)
  Receive Date: 20061005
  Receipt Date: 20060926
  Transmission Date: 20070319
  Serious: Yes (Life-Threatening)
  Sender: FDA-Public Use
  Company Number: GXKR2006GB05935

PATIENT
  Age: 29 Year
  Sex: Female

DRUGS (4)
  1. MIRTAZAPINE [Suspect]
     Indication: DEPRESSION
     Dosage: ORAL
     Route: 048
     Dates: end: 20060828
  2. REBOXETINE                (REBOXETINE) [Suspect]
     Indication: DEPRESSION
     Dosage: 4 MG, BID, ORAL
     Route: 048
     Dates: start: 20060829
  3. HYDROCORTISONE ACETATE [Concomitant]
  4. INSULIN [Concomitant]

REACTIONS (3)
  - DRUG INTERACTION [None]
  - GRAND MAL CONVULSION [None]
  - HYPOGLYCAEMIA [None]
